FAERS Safety Report 5019401-6 (Version None)
Quarter: 2006Q2

REPORT INFORMATION
  Report Type: 
  Country: None (occurrence: None)
  Receive Date: 20060531
  Receipt Date: 20060518
  Transmission Date: 20061013
  Serious: Yes (Other)
  Sender: FDA-Public Use
  Company Number: 2006060357

PATIENT
  Age: 54 Year
  Sex: Female

DRUGS (6)
  1. HALCION [Suspect]
     Indication: INSOMNIA
     Dosage: ORAL
     Route: 048
     Dates: end: 20060421
  2. PAXIL [Suspect]
     Indication: DEPRESSION
     Dosage: 20 MG (1 IN 1 D), ORAL
     Route: 048
     Dates: start: 20050707
  3. LEXOTAN (BROMAZEPAM) [Suspect]
     Indication: ANXIETY
     Dosage: 2 MG (1 IN 1 D), ORAL
     Route: 048
  4. ROHYPNOL (FLUNITRAZEPAM) [Suspect]
     Indication: INSOMNIA
     Dosage: 1 MG (1 IN 1 D), ORAL
     Route: 048
     Dates: start: 20050830
  5. NITRAZEPAM [Suspect]
     Indication: ILL-DEFINED DISORDER
     Dosage: ORAL
     Route: 048
  6. ESTAZOLAM [Concomitant]

REACTIONS (3)
  - DRUG DISPENSING ERROR [None]
  - MULTIPLE DRUG OVERDOSE INTENTIONAL [None]
  - SUICIDE ATTEMPT [None]
